FAERS Safety Report 17175685 (Version 1)
Quarter: 2019Q4

REPORT INFORMATION
  Report Type: Spontaneous
  Country: US (occurrence: US)
  Receive Date: 20191219
  Receipt Date: 20191219
  Transmission Date: 20200122
  Serious: Yes (Death)
  Sender: FDA-Public Use
  Company Number: US-ROCHE-2496539

PATIENT
  Age: 78 Year
  Sex: Female

DRUGS (1)
  1. OCREVUS [Suspect]
     Active Substance: OCRELIZUMAB
     Indication: MULTIPLE SCLEROSIS
     Dosage: 30MG/ML,THERAPY STATUS: DISCONTINUED
     Route: 042
     Dates: start: 20180404, end: 20191017

REACTIONS (1)
  - Death [Fatal]

NARRATIVE: CASE EVENT DATE: 20191017
